FAERS Safety Report 16956648 (Version 2)
Quarter: 2019Q4

REPORT INFORMATION
  Report Type: Spontaneous
  Country: IT (occurrence: IT)
  Receive Date: 20191024
  Receipt Date: 20191107
  Transmission Date: 20200122
  Serious: Yes (Other)
  Sender: FDA-Public Use
  Company Number: IT-ELI_LILLY_AND_COMPANY-IT201910009994

PATIENT
  Sex: Male

DRUGS (4)
  1. CISPLATIN. [Concomitant]
     Active Substance: CISPLATIN
     Indication: PHARYNGEAL CANCER
     Dosage: UNK
  2. ERBITUX [Suspect]
     Active Substance: CETUXIMAB
     Indication: PHARYNGEAL CANCER
     Dosage: 400 MG/M2, UNKNOWN
     Route: 065
  3. ERBITUX [Suspect]
     Active Substance: CETUXIMAB
     Dosage: 250 MG/M2, WEEKLY (1/W)
     Route: 065
  4. 5 FU [Concomitant]
     Active Substance: FLUOROURACIL
     Indication: PHARYNGEAL CANCER
     Dosage: UNK

REACTIONS (1)
  - Neoplasm recurrence [Not Recovered/Not Resolved]
